FAERS Safety Report 20436799 (Version 3)
Quarter: 2022Q1

REPORT INFORMATION
  Report Type: Spontaneous
  Country: US (occurrence: US)
  Receive Date: 20220207
  Receipt Date: 20220302
  Transmission Date: 20220423
  Serious: Yes (Hospitalization, Other)
  Sender: FDA-Public Use
  Company Number: US-AMGEN-USASP2022017835

PATIENT
  Age: 79 Year
  Sex: Male

DRUGS (1)
  1. REPATHA [Suspect]
     Active Substance: EVOLOCUMAB
     Indication: Product used for unknown indication
     Dosage: UNK
     Route: 065
     Dates: start: 202106

REACTIONS (3)
  - Cerebrovascular accident [Unknown]
  - Infection [Unknown]
  - Product storage error [Unknown]

NARRATIVE: CASE EVENT DATE: 20220101
